FAERS Safety Report 25145964 (Version 1)
Quarter: 2025Q2

REPORT INFORMATION
  Report Type: Spontaneous
  Country: US (occurrence: None)
  Receive Date: 20250401
  Receipt Date: 20250401
  Transmission Date: 20250716
  Serious: Yes (Other)
  Sender: FDA-CTU
  Company Number: None

PATIENT
  Age: 8 Year
  Sex: Male
  Weight: 31.4 kg

DRUGS (5)
  1. AGAMREE [Suspect]
     Active Substance: VAMOROLONE
     Indication: Duchenne muscular dystrophy
     Dosage: FREQUENCY : DAILY;?
     Route: 048
     Dates: start: 20240320, end: 20240504
  2. OMEPRAZOLE [Concomitant]
     Active Substance: OMEPRAZOLE
     Dates: start: 20231122
  3. cholecalciferol 1000 IU chew [Concomitant]
     Dates: start: 20240101
  4. Garden of Life organic multivitamin with Vit C, Vit D and probiotic [Concomitant]
     Dates: start: 20231130
  5. PREDNISONE [Suspect]
     Active Substance: PREDNISONE

REACTIONS (4)
  - Weight increased [None]
  - Anger [None]
  - Abnormal behaviour [None]
  - Hallucinations, mixed [None]

NARRATIVE: CASE EVENT DATE: 20240504
